FAERS Safety Report 17914182 (Version 4)
Quarter: 2020Q4

REPORT INFORMATION
  Report Type: Report from Study
  Country: US (occurrence: US)
  Receive Date: 20200619
  Receipt Date: 20201208
  Transmission Date: 20210113
  Serious: No
  Sender: FDA-Public Use
  Company Number: NVSC2020US171125

PATIENT
  Sex: Male

DRUGS (2)
  1. COSENTYX [Suspect]
     Active Substance: SECUKINUMAB
     Dosage: 150 MG, Q2W
     Route: 058
  2. COSENTYX [Suspect]
     Active Substance: SECUKINUMAB
     Indication: ANKYLOSING SPONDYLITIS
     Dosage: 150 MG, Q4W
     Route: 058

REACTIONS (5)
  - Pain [Unknown]
  - Inappropriate schedule of product administration [Unknown]
  - Psoriasis [Unknown]
  - Headache [Unknown]
  - Drug ineffective [Unknown]
